FAERS Safety Report 6804598-5 (Version None)
Quarter: 2010Q2

REPORT INFORMATION
  Report Type: 
  Country: None (occurrence: None)
  Receive Date: 20100628
  Receipt Date: 20070418
  Transmission Date: 20101027
  Serious: No
  Sender: FDA-Public Use
  Company Number: US-PFIZER INC-2007031983

PATIENT
  Sex: Male
  Weight: 74.4 kg

DRUGS (2)
  1. SUTENT [Suspect]
     Indication: RENAL CELL CARCINOMA
     Dates: start: 20070301, end: 20070418
  2. VITAMINS [Concomitant]

REACTIONS (1)
  - PAIN IN EXTREMITY [None]
